FAERS Safety Report 9385209 (Version 3)
Quarter: 2013Q4

REPORT INFORMATION
  Report Type: Spontaneous
  Country: US (occurrence: US)
  Receive Date: 20130705
  Receipt Date: 20131217
  Transmission Date: 20140711
  Serious: Yes (Hospitalization)
  Sender: FDA-Public Use
  Company Number: US-GLAXOSMITHKLINE-A0815861A

PATIENT
  Age: 55 Year
  Sex: Female

DRUGS (3)
  1. FLONASE [Suspect]
     Indication: PRODUCT USED FOR UNKNOWN INDICATION
     Dosage: 50MCG UNKNOWN
     Route: 045
     Dates: start: 20090209
  2. ADVAIR [Suspect]
     Indication: ASTHMA
     Dosage: 1PUFF TWICE PER DAY
     Route: 055
     Dates: start: 20051105
  3. VENTOLIN HFA [Suspect]
     Indication: PRODUCT USED FOR UNKNOWN INDICATION
     Dosage: 90MCG UNKNOWN
     Route: 065
     Dates: start: 20101005

REACTIONS (11)
  - Hip arthroplasty [Unknown]
  - Multiple fractures [Unknown]
  - Adverse event [Unknown]
  - Fall [Unknown]
  - Biopsy [Unknown]
  - Accident [Unknown]
  - Influenza [Unknown]
  - Limb injury [Unknown]
  - Patella fracture [Unknown]
  - Knee operation [Unknown]
  - Pain [Unknown]
